FAERS Safety Report 8058079-4 (Version None)
Quarter: 2012Q1

REPORT INFORMATION
  Report Type: 
  Country: None (occurrence: None)
  Receive Date: 20120118
  Receipt Date: 20120118
  Transmission Date: 20120608
  Serious: Yes (Hospitalization, Disabling)
  Sender: FDA-Public Use
  Company Number: None

PATIENT
  Age: 33 Year
  Sex: Female
  Weight: 103.2 kg

DRUGS (6)
  1. ATENOLOL [Concomitant]
  2. YASMIN [Suspect]
     Indication: OVARIAN CYST
     Dosage: YASMIN 28 DAILY ONCE DAILY ORAL
     Route: 048
  3. MAGNESIUM OXIDE [Concomitant]
  4. VITAMIN D [Concomitant]
  5. TOPIRAMATE [Concomitant]
  6. ACIPHEX [Concomitant]

REACTIONS (4)
  - VOMITING [None]
  - GALLBLADDER DISORDER [None]
  - NAUSEA [None]
  - DIARRHOEA [None]
